FAERS Safety Report 4445687-2 (Version None)
Quarter: 2004Q3

REPORT INFORMATION
  Report Type: 
  Country: None (occurrence: None)
  Receive Date: 20040902
  Receipt Date: 20040820
  Transmission Date: 20050211
  Serious: Yes (Hospitalization)
  Sender: FDA-Public Use
  Company Number: 2004-FF-00469FF

PATIENT
  Age: 94 Year
  Sex: Female

DRUGS (6)
  1. CLONIDINE [Suspect]
     Dosage: 0.15 MG (0.15 MG), PO
     Route: 048
     Dates: end: 20040622
  2. ALDACTONE [Suspect]
     Dosage: 25 MG (25 MG), PO
     Route: 048
     Dates: end: 20040622
  3. SERMION (NICERGOLINE) [Suspect]
     Dosage: 1 UNIT DOSE THREE TIMES DAILY, PO
     Route: 048
     Dates: end: 20040622
  4. EUPRESSYL (URAPIDIL) (KA) [Suspect]
     Dosage: 30 MG (30 MG), PO
     Route: 048
     Dates: end: 20040622
  5. CELECTOL [Suspect]
     Dosage: 200 MG (200 MG), PO
     Route: 048
     Dates: end: 20040622
  6. STABLON (TIANEPTINE) (TA) [Suspect]
     Dosage: 25 MG (12.5 MG) , PO
     Route: 048
     Dates: end: 20040622

REACTIONS (1)
  - PANCREATITIS ACUTE [None]
